FAERS Safety Report 7189370-1 (Version None)
Quarter: 2010Q4

REPORT INFORMATION
  Report Type: 
  Country: None (occurrence: None)
  Receive Date: 20101222
  Receipt Date: 20100830
  Transmission Date: 20110411
  Serious: No
  Sender: FDA-Public Use
  Company Number: US-AMGEN-TCS423955

PATIENT

DRUGS (6)
  1. ENBREL [Suspect]
     Indication: RHEUMATOID ARTHRITIS
     Dosage: 50 MG, QWK
     Route: 058
     Dates: start: 20100623
  2. IBUPROFEN [Concomitant]
     Indication: RHEUMATOID ARTHRITIS
     Dosage: 800 MG, TID
     Route: 048
     Dates: start: 20090105
  3. METHOTREXATE [Concomitant]
     Indication: RHEUMATOID ARTHRITIS
     Dosage: 10 MG, QWK
     Route: 048
     Dates: start: 20090127
  4. FOLIC ACID [Concomitant]
     Dosage: 5 MG, QD
     Route: 048
     Dates: start: 20090127
  5. ALENDRONATE SODIUM [Concomitant]
     Dosage: 70 MG, QWK
     Route: 048
  6. MICARDIS [Concomitant]
     Dosage: UNK UNK, QD
     Route: 048

REACTIONS (5)
  - BACK PAIN [None]
  - INJECTION SITE ERYTHEMA [None]
  - INJECTION SITE PRURITUS [None]
  - INJECTION SITE RASH [None]
  - INJECTION SITE REACTION [None]
